FAERS Safety Report 20455732 (Version 1)
Quarter: 2022Q1

REPORT INFORMATION
  Report Type: Spontaneous
  Country: US (occurrence: US)
  Receive Date: 20220210
  Receipt Date: 20220210
  Transmission Date: 20220424
  Serious: Yes (Hospitalization, Other)
  Sender: FDA-Public Use
  Company Number: US-BRISTOL-MYERS SQUIBB COMPANY-BMS-2022-019628

PATIENT
  Age: 52 Year
  Sex: Female
  Weight: 82.9 kg

DRUGS (4)
  1. OPDIVO [Suspect]
     Active Substance: NIVOLUMAB
     Indication: Metastatic malignant melanoma
     Dosage: 80 MG IN SODIUM CHLORIDE 0.9% (NS) 50 ML IVPB3, INTRAVENOUS, 4 OF 4 CYCLES
     Route: 042
     Dates: start: 20210401
  2. OPDIVO [Suspect]
     Active Substance: NIVOLUMAB
     Dosage: 480 MG IN SODIUM CHLORIDE 0.9% (NS) 100 ML IVPB3, INTRAVENOUS, 5 OF 10 CYCLES
     Route: 042
     Dates: end: 20211108
  3. YERVOY [Suspect]
     Active Substance: IPILIMUMAB
     Indication: Metastatic malignant melanoma
     Dosage: 200 MG IN SODIUM CHLORIDE 0.9% (NS) 100 ML IVPB, INTRAVENOUS, 4 OF 4 CYCLES
     Route: 042
     Dates: start: 20210401, end: 20211108
  4. SODIUM CHLORIDE [Concomitant]
     Active Substance: SODIUM CHLORIDE
     Indication: Product used for unknown indication
     Route: 065

REACTIONS (3)
  - Malignant neoplasm progression [Unknown]
  - Facial paralysis [Unknown]
  - Off label use [Unknown]

NARRATIVE: CASE EVENT DATE: 20210401
